FAERS Safety Report 18041064 (Version 2)
Quarter: 2020Q3

REPORT INFORMATION
  Report Type: Report from Study
  Country: BR (occurrence: BR)
  Receive Date: 20200718
  Receipt Date: 20200724
  Transmission Date: 20201103
  Serious: Yes (Other)
  Sender: FDA-Public Use
  Company Number: NVSC2020BR190127

PATIENT
  Age: 56 Year
  Sex: Male

DRUGS (7)
  1. COSENTYX [Suspect]
     Active Substance: SECUKINUMAB
     Indication: ANKYLOSING SPONDYLITIS
     Dosage: 150 MG, UNKNOWN
     Route: 065
     Dates: start: 20190424
  2. ENTECAVIR. [Concomitant]
     Active Substance: ENTECAVIR
     Indication: HEPATITIS B
     Dosage: UNK
     Route: 065
  3. CODEINE [Concomitant]
     Active Substance: CODEINE
     Indication: ANKYLOSING SPONDYLITIS
     Dosage: 30 MG (ONCE OR TWICE DEPENDS ON PAIN)
     Route: 048
     Dates: start: 202002
  4. COSENTYX [Suspect]
     Active Substance: SECUKINUMAB
     Dosage: 150 MG, UNKNOWN
     Route: 065
     Dates: start: 20200130
  5. COSENTYX [Suspect]
     Active Substance: SECUKINUMAB
     Dosage: 150 MG, UNKNOWN
     Route: 065
     Dates: start: 20200627
  6. DIPIRONA [Concomitant]
     Active Substance: METAMIZOLE
     Indication: ANKYLOSING SPONDYLITIS
     Dosage: 500 UNK(ONCE OR TWICW DEPENDS ON PAIN)
     Route: 048
     Dates: start: 202002
  7. OMEPRAZOLE. [Concomitant]
     Active Substance: OMEPRAZOLE
     Indication: DYSPEPSIA
     Dosage: 20 MG, BID
     Route: 065

REACTIONS (6)
  - Diabetes mellitus [Not Recovered/Not Resolved]
  - Ankylosing spondylitis [Not Recovered/Not Resolved]
  - Pain [Unknown]
  - Ankylosing spondylitis [Recovered/Resolved]
  - Drug ineffective [Not Recovered/Not Resolved]
  - Hypertension [Not Recovered/Not Resolved]

NARRATIVE: CASE EVENT DATE: 202001
